FAERS Safety Report 10867966 (Version 1)
Quarter: 2015Q1

REPORT INFORMATION
  Report Type: Spontaneous
  Country: JP (occurrence: JP)
  Receive Date: 20150225
  Receipt Date: 20150225
  Transmission Date: 20150721
  Serious: Yes (Life-Threatening)
  Sender: FDA-Public Use
  Company Number: JP-ASTRAZENECA-2015SE17173

PATIENT
  Age: 2538 Day
  Sex: Male

DRUGS (5)
  1. INDERAL [Concomitant]
     Active Substance: PROPRANOLOL HYDROCHLORIDE
     Dates: start: 20140718, end: 20140810
  2. METRELEPTIN [Suspect]
     Active Substance: METRELEPTIN
     Indication: LIPOATROPHY
     Route: 058
     Dates: start: 20140703, end: 20141106
  3. METRELEPTIN [Suspect]
     Active Substance: METRELEPTIN
     Indication: LIPOATROPHY
     Route: 058
     Dates: start: 20141107, end: 20141118
  4. MAINTATE [Concomitant]
     Active Substance: BISOPROLOL FUMARATE
  5. INCREMIN [Concomitant]
     Active Substance: FERRIC PYROPHOSPHATE
     Dates: start: 20140829, end: 20141020

REACTIONS (3)
  - Anaphylactic reaction [Recovered/Resolved]
  - Injection site erythema [Recovered/Resolved]
  - Injection site swelling [Recovered/Resolved]

NARRATIVE: CASE EVENT DATE: 20140817
